FAERS Safety Report 8554510-6 (Version None)
Quarter: 2012Q3

REPORT INFORMATION
  Report Type: 
  Country: None (occurrence: None)
  Receive Date: 20120726
  Receipt Date: 20120726
  Transmission Date: 20120928
  Serious: Yes (Life-Threatening, Hospitalization)
  Sender: FDA-Public Use
  Company Number: None

PATIENT
  Age: 63 Year
  Sex: Male
  Weight: 78.0187 kg

DRUGS (1)
  1. VOLTAREN [Suspect]
     Indication: RETINAL OEDEMA
     Dosage: 1 DROP BID OPHTHALMIC
     Route: 047
     Dates: start: 20120601, end: 20120612

REACTIONS (10)
  - DUODENAL ULCER [None]
  - GASTRITIS [None]
  - ILEUS [None]
  - BLOOD POTASSIUM INCREASED [None]
  - CONFUSIONAL STATE [None]
  - VOMITING [None]
  - LABORATORY TEST ABNORMAL [None]
  - LARGE INTESTINAL HAEMORRHAGE [None]
  - VISION BLURRED [None]
  - RENAL FAILURE [None]
